FAERS Safety Report 17912782 (Version 1)
Quarter: 2020Q2

REPORT INFORMATION
  Report Type: Spontaneous
  Country: CN (occurrence: CN)
  Receive Date: 20200618
  Receipt Date: 20200618
  Transmission Date: 20200714
  Serious: Yes (Other)
  Sender: FDA-Public Use
  Company Number: CN-009507513-2006CHN004732

PATIENT
  Age: 53 Year
  Sex: Female
  Weight: 48 kg

DRUGS (1)
  1. FOSAMAX PLUS D [Suspect]
     Active Substance: ALENDRONATE SODIUM\CHOLECALCIFEROL
     Indication: OSTEOPOROSIS
     Dosage: 1 TABLET QD
     Route: 048
     Dates: start: 20200422, end: 20200513

REACTIONS (10)
  - White blood cell count increased [Unknown]
  - Neutrophil percentage increased [Unknown]
  - Serum amyloid A protein increased [Unknown]
  - Condition aggravated [Unknown]
  - Laryngeal ulceration [Recovering/Resolving]
  - Cough [Recovering/Resolving]
  - Asthenia [Recovering/Resolving]
  - Myalgia [Recovering/Resolving]
  - C-reactive protein increased [Unknown]
  - Pyrexia [Recovering/Resolving]

NARRATIVE: CASE EVENT DATE: 20200507
